FAERS Safety Report 7558310-5 (Version None)
Quarter: 2011Q2

REPORT INFORMATION
  Report Type: 
  Country: None (occurrence: None)
  Receive Date: 20110620
  Receipt Date: 20110608
  Transmission Date: 20111010
  Serious: Yes (Hospitalization, Other)
  Sender: FDA-Public Use
  Company Number: CH-ELI_LILLY_AND_COMPANY-CH201105001766

PATIENT
  Sex: Male
  Weight: 80 kg

DRUGS (8)
  1. EFFIENT [Suspect]
     Dosage: 10 MG, QD
  2. ACETAMINOPHEN [Concomitant]
  3. EFFIENT [Suspect]
     Indication: ACUTE CORONARY SYNDROME
     Dosage: 60 MG, UNK
     Dates: start: 20100903
  4. HEPARIN [Concomitant]
     Dosage: 2500 DF, UNKNOWN
     Route: 058
  5. ASPIRIN [Concomitant]
     Dosage: 100 MG, UNKNOWN
  6. CLARITHROMYCIN [Concomitant]
  7. PANTOPRAZOLE [Concomitant]
  8. CEFUROXIM                          /00454602/ [Concomitant]
     Route: 042

REACTIONS (3)
  - HELICOBACTER TEST POSITIVE [None]
  - GASTRITIS [None]
  - GASTRIC ULCER HAEMORRHAGE [None]
